FAERS Safety Report 8599249-6 (Version None)
Quarter: 2012Q3

REPORT INFORMATION
  Report Type: 
  Country: None (occurrence: None)
  Receive Date: 20120816
  Receipt Date: 20111223
  Transmission Date: 20120928
  Serious: No
  Sender: FDA-Public Use
  Company Number: US-AMGEN-USASP2011054702

PATIENT
  Age: 78 Year
  Sex: Female

DRUGS (9)
  1. HYDROCHLOROTHIAZIDE [Concomitant]
  2. TEMAZEPAM [Concomitant]
  3. ALBUTEROL [Concomitant]
  4. CRESTOR [Concomitant]
  5. POTASSIUM [Concomitant]
  6. WARFARIN SODIUM [Concomitant]
  7. NEUPOGEN [Suspect]
     Indication: BLADDER CANCER
     Dosage: 300 MUG, QWK
  8. MAGNESIUM CITRATE [Concomitant]
  9. AVAPRO [Concomitant]

REACTIONS (3)
  - PYREXIA [None]
  - NAUSEA [None]
  - TREMOR [None]
